FAERS Safety Report 5619482-2 (Version None)
Quarter: 2008Q1

REPORT INFORMATION
  Report Type: 
  Country: None (occurrence: None)
  Receive Date: 20080114
  Receipt Date: 20070619
  Transmission Date: 20080703
  Serious: Yes (Other)
  Sender: FDA-Public Use
  Company Number: FEI2007-1036

PATIENT
  Age: 35 Year
  Sex: Female
  Weight: 49.8957 kg

DRUGS (2)
  1. PARAGARD T 380A [Suspect]
     Indication: CONTRACEPTION
     Dosage: INTRA-UTERINE
     Route: 015
     Dates: start: 20061201, end: 20070301
  2. MULTIVITAMIN (MULTIVITAMIN /00831701) [Concomitant]

REACTIONS (4)
  - ABORTION SPONTANEOUS [None]
  - IUCD COMPLICATION [None]
  - MENORRHAGIA [None]
  - UNINTENDED PREGNANCY [None]
